FAERS Safety Report 10024437 (Version 1)
Quarter: 2014Q1

REPORT INFORMATION
  Report Type: Spontaneous
  Country: GB (occurrence: GB)
  Receive Date: 20140320
  Receipt Date: 20140320
  Transmission Date: 20141002
  Serious: Yes (Hospitalization, Disabling)
  Sender: FDA-Public Use
  Company Number: GB-BAUSCH-BL-2014-001287

PATIENT
  Age: 72 Year
  Sex: Female
  Weight: 169 kg

DRUGS (6)
  1. PREDNISOLONE [Suspect]
     Indication: TEMPORAL ARTERITIS
     Dates: start: 201309, end: 20140101
  2. PREDNISOLONE [Suspect]
     Dates: start: 20140102
  3. CO-AMILOFRUSE [Concomitant]
     Indication: FLUID RETENTION
  4. OMEPRAZOLE [Concomitant]
     Indication: GASTROOESOPHAGEAL REFLUX DISEASE
  5. OMEPRAZOLE [Concomitant]
     Indication: HIATUS HERNIA
  6. THYROXINE [Concomitant]
     Indication: THYROID DISORDER

REACTIONS (3)
  - Convulsion [Recovering/Resolving]
  - Tremor [Not Recovered/Not Resolved]
  - Muscle spasms [Not Recovered/Not Resolved]
